FAERS Safety Report 19926743 (Version 2)
Quarter: 2021Q4

REPORT INFORMATION
  Report Type: Report from Study
  Country: US (occurrence: US)
  Receive Date: 20211007
  Receipt Date: 20211013
  Transmission Date: 20220303
  Serious: No
  Sender: FDA-Public Use
  Company Number: US-BIOVITRUM-2021US8833

PATIENT
  Age: 50 Year
  Sex: Female

DRUGS (1)
  1. KINERET [Suspect]
     Active Substance: ANAKINRA
     Indication: Ankylosing spondylitis
     Route: 058
     Dates: start: 20201229

REACTIONS (5)
  - Influenza [Unknown]
  - White blood cell count increased [Unknown]
  - Inflammatory marker increased [Unknown]
  - Pain in extremity [Unknown]
  - Off label use [Not Recovered/Not Resolved]

NARRATIVE: CASE EVENT DATE: 20201229
